FAERS Safety Report 10441539 (Version 2)
Quarter: 2014Q4

REPORT INFORMATION
  Report Type: Spontaneous
  Country: FR (occurrence: FR)
  Receive Date: 20140908
  Receipt Date: 20141201
  Transmission Date: 20150528
  Serious: Yes (Hospitalization)
  Sender: FDA-Public Use
  Company Number: FR-BAXTER-2014BAX053112

PATIENT
  Age: 49 Year
  Sex: Female

DRUGS (10)
  1. UROMITEXAN 5 G/50 ML, SOLUTION INJECTABLE POUR PERFUSION EN FLACON [Suspect]
     Active Substance: MESNA
     Indication: CHEMOTHERAPY
     Dosage: 2500MG/M2; DAY 1 TO DAY 3
     Route: 042
     Dates: start: 20131001, end: 20131003
  2. ONDANSETRON [Suspect]
     Active Substance: ONDANSETRON
     Indication: PRODUCT USED FOR UNKNOWN INDICATION
     Dosage: DAY 1 TO DAY 3
     Route: 042
     Dates: start: 20131001, end: 20131003
  3. PARACETAMOL [Concomitant]
     Active Substance: ACETAMINOPHEN
     Indication: PRODUCT USED FOR UNKNOWN INDICATION
     Route: 065
  4. METHYLPREDNISOLONE. [Concomitant]
     Active Substance: METHYLPREDNISOLONE
     Indication: PRODUCT USED FOR UNKNOWN INDICATION
     Route: 042
     Dates: start: 20131001, end: 20131010
  5. VENLAFAXINE [Concomitant]
     Active Substance: VENLAFAXINE HYDROCHLORIDE
     Indication: PRODUCT USED FOR UNKNOWN INDICATION
     Route: 048
     Dates: start: 20130927
  6. PHLOROGLUCINOL [Concomitant]
     Active Substance: PHLOROGLUCINOL
     Indication: PRODUCT USED FOR UNKNOWN INDICATION
     Route: 065
  7. DOXORUBICIN HYDROCHLORIDE. [Suspect]
     Active Substance: DOXORUBICIN HYDROCHLORIDE
     Indication: CHEMOTHERAPY
     Dosage: 20 MG/M2; DAY 1 TO DAY 3
     Route: 042
     Dates: start: 20131001, end: 20131003
  8. HOLOXAN 2000 MG, POUDRE POUR USAGE PARENT?RAL [Suspect]
     Active Substance: IFOSFAMIDE
     Indication: CHEMOTHERAPY
     Dosage: 2500 MG/M2; DAY 1 TO DAY 3
     Route: 042
     Dates: start: 20131001, end: 20131003
  9. CONTRAMAL [Concomitant]
     Active Substance: TRAMADOL HYDROCHLORIDE
     Indication: PRODUCT USED FOR UNKNOWN INDICATION
     Route: 042
     Dates: end: 20141010
  10. IBUPROFENE [Concomitant]
     Active Substance: IBUPROFEN
     Indication: PRODUCT USED FOR UNKNOWN INDICATION
     Route: 065

REACTIONS (1)
  - Encephalopathy [Recovered/Resolved]

NARRATIVE: CASE EVENT DATE: 20131004
